FAERS Safety Report 7488141-6 (Version None)
Quarter: 2011Q2

REPORT INFORMATION
  Report Type: 
  Country: None (occurrence: None)
  Receive Date: 20110518
  Receipt Date: 20110511
  Transmission Date: 20111010
  Serious: Yes (Other)
  Sender: FDA-Public Use
  Company Number: US-ROCHE-772796

PATIENT
  Sex: Male
  Weight: 101.2 kg

DRUGS (6)
  1. PROCRIT [Concomitant]
  2. PEGINTERFERON ALFA-2A [Suspect]
     Indication: HEPATITIS C
     Dosage: PRE-FILLED SYRINGE. IN WEEK 34 OF TREATMENT
     Route: 065
     Dates: start: 20101020
  3. RIBAVARIN [Suspect]
     Indication: HEPATITIS C
     Dosage: DIVIDED DOSES
     Route: 065
     Dates: start: 20101020
  4. RIBAVARIN [Suspect]
     Dosage: LOWERED DOSAGE. IN WEEK 34 OF THE TREATMENT.
     Route: 065
  5. ZIPRASIDONE HYDROCHLORIDE [Concomitant]
  6. HYDROXYZINE [Concomitant]
     Dosage: DRUG REPORTED AS HYDROXYZINE BROMATED

REACTIONS (8)
  - BLOODY DISCHARGE [None]
  - OROPHARYNGEAL PAIN [None]
  - FATIGUE [None]
  - WEIGHT DECREASED [None]
  - ODYNOPHAGIA [None]
  - DRY MOUTH [None]
  - PHARYNGEAL MASS [None]
  - RETCHING [None]
